FAERS Safety Report 22007952 (Version 2)
Quarter: 2023Q1

REPORT INFORMATION
  Report Type: Spontaneous
  Country: US (occurrence: US)
  Receive Date: 20230218
  Receipt Date: 20230315
  Transmission Date: 20230418
  Serious: No
  Sender: FDA-Public Use
  Company Number: US-AMGEN-USASP2023026744

PATIENT
  Age: 75 Year
  Sex: Female
  Weight: 63.946 kg

DRUGS (2)
  1. PROLIA [Suspect]
     Active Substance: DENOSUMAB
     Indication: Product used for unknown indication
     Dosage: UNK
     Route: 065
  2. COVID-19 vaccine [Concomitant]
     Dosage: UNK
     Route: 065
     Dates: start: 20221206

REACTIONS (6)
  - Palpitations [Recovered/Resolved]
  - Anxiety [Recovered/Resolved]
  - Dysuria [Recovered/Resolved]
  - Gastrointestinal pain [Recovered/Resolved]
  - Nausea [Recovered/Resolved]
  - Taste disorder [Recovered/Resolved]

NARRATIVE: CASE EVENT DATE: 20230101
